FAERS Safety Report 4618327-7 (Version None)
Quarter: 2005Q1

REPORT INFORMATION
  Report Type: 
  Country: None (occurrence: None)
  Receive Date: 20050324
  Receipt Date: 20050315
  Transmission Date: 20050727
  Serious: Yes (Hospitalization)
  Sender: FDA-Public Use
  Company Number: US-MERCK-0503USA02544

PATIENT
  Age: 90 Year
  Sex: Female

DRUGS (9)
  1. FOSAMAX [Suspect]
     Indication: OSTEOPOROSIS
     Route: 048
     Dates: start: 20041215
  2. FOSAMAX [Suspect]
     Indication: SPINAL COMPRESSION FRACTURE
     Route: 048
     Dates: start: 20041215
  3. COZAAR [Concomitant]
     Route: 048
  4. ATENOLOL [Concomitant]
     Route: 065
  5. COUMADIN [Concomitant]
     Route: 065
  6. ALPHAGAN [Concomitant]
     Route: 065
  7. BETOPTIC S [Concomitant]
     Route: 065
  8. XALATAN [Concomitant]
     Route: 065
  9. METHIMAZOL [Concomitant]
     Route: 065

REACTIONS (2)
  - INFECTION [None]
  - MEDICATION ERROR [None]
